FAERS Safety Report 24219902 (Version 1)
Quarter: 2024Q3

REPORT INFORMATION
  Report Type: Spontaneous
  Country: FR (occurrence: FR)
  Receive Date: 20240817
  Receipt Date: 20240817
  Transmission Date: 20241017
  Serious: Yes (Disabling, Other)
  Sender: AUROBINDO
  Company Number: FR-AFSSAPS-GR2024000978

PATIENT
  Age: 65 Year
  Sex: Female
  Weight: 114 kg

DRUGS (2)
  1. CARBOPLATIN [Suspect]
     Active Substance: CARBOPLATIN
     Indication: Endometrial adenocarcinoma
     Dosage: 635 MILLIGRAM (3 WEEKS)
     Route: 042
     Dates: start: 20240612, end: 20240703
  2. PACLITAXEL [Suspect]
     Active Substance: PACLITAXEL
     Indication: Endometrial adenocarcinoma
     Dosage: 175 MILLIGRAM/SQ. METER (3 WEEKS)
     Route: 042
     Dates: start: 20240612, end: 20240703

REACTIONS (1)
  - Retinal vein occlusion [Not Recovered/Not Resolved]

NARRATIVE: CASE EVENT DATE: 20240707
